FAERS Safety Report 6435565-1 (Version None)
Quarter: 2009Q4

REPORT INFORMATION
  Report Type: 
  Country: None (occurrence: None)
  Receive Date: 20091111
  Receipt Date: 20091104
  Transmission Date: 20100525
  Serious: Yes (Hospitalization)
  Sender: FDA-Public Use
  Company Number: DE-TEVA-214472ISR

PATIENT
  Sex: Male
  Weight: 118 kg

DRUGS (6)
  1. PACLITAXEL [Suspect]
     Indication: NON-SMALL CELL LUNG CANCER
     Route: 042
     Dates: start: 20090804
  2. CARBOPLATIN [Suspect]
     Indication: NON-SMALL CELL LUNG CANCER
     Route: 042
     Dates: start: 20090804
  3. TIOTROPIUM BROMIDE [Concomitant]
     Dates: start: 20040101
  4. BUDESONIDE W/FORMOTEROL FUMARATE [Concomitant]
     Dates: start: 20040101
  5. METAMIZOLE SODIUM [Concomitant]
     Dates: start: 20090730
  6. DICLOFENAC [Concomitant]
     Dates: start: 20091001, end: 20091001

REACTIONS (2)
  - RENAL IMPAIRMENT [None]
  - THROMBOCYTOPENIA [None]
